FAERS Safety Report 7496520-6 (Version None)
Quarter: 2011Q2

REPORT INFORMATION
  Report Type: 
  Country: None (occurrence: None)
  Receive Date: 20110523
  Receipt Date: 20110512
  Transmission Date: 20111010
  Serious: No
  Sender: FDA-Public Use
  Company Number: US-ROXANE LABORATORIES, INC.-2011-RO-00651RO

PATIENT
  Age: 79 Year
  Sex: Female

DRUGS (10)
  1. CELLCEPT [Concomitant]
     Dosage: 1000 MG
  2. BALSALAZIDE DISODIUM [Suspect]
     Indication: COLITIS ULCERATIVE
     Dosage: 4500 MG
     Route: 048
  3. VITAMIN B-12 [Concomitant]
  4. CALCIUM PLUS D [Concomitant]
  5. PREDNISONE [Concomitant]
     Dosage: 15 MG
  6. SYNTHROID [Concomitant]
     Indication: HYPOTHYROIDISM
     Dosage: 88 MCG
  7. FOSAMAX [Concomitant]
  8. METFORMIN [Concomitant]
     Indication: TYPE 2 DIABETES MELLITUS
     Dosage: 2000 MG
  9. MULTI-VITAMIN [Concomitant]
  10. ASCORBIC ACID [Concomitant]

REACTIONS (1)
  - MEDICATION RESIDUE [None]
